FAERS Safety Report 5816951-7 (Version None)
Quarter: 2008Q3

REPORT INFORMATION
  Report Type: 
  Country: None (occurrence: None)
  Receive Date: 20080722
  Receipt Date: 20080714
  Transmission Date: 20090109
  Serious: Yes (Hospitalization)
  Sender: FDA-Public Use
  Company Number: PHHY2008IE14275

PATIENT
  Age: 55 Year
  Sex: Male

DRUGS (9)
  1. NORETHINDRONE ACETATE AND ETHINYL ESTRADIOL [Suspect]
  2. ASPIRIN [Concomitant]
     Indication: CARDIAC DISORDER
     Dosage: UNK
  3. WARFARIN SODIUM [Concomitant]
     Indication: CARDIAC DISORDER
     Dosage: UNK
  4. NEBILET [Concomitant]
     Dosage: 5 MG, QD
  5. LIPITOR [Concomitant]
     Dosage: 10 MG, QD
  6. INDAPAMIDE [Concomitant]
     Dosage: 1.5 MG, QD
  7. PROZATAN [Concomitant]
     Indication: DEPRESSION
     Dosage: 75MG/ DAY
  8. PROZATAN [Concomitant]
     Indication: FEELING OF RELAXATION
  9. HRT [Concomitant]

REACTIONS (1)
  - CORONARY ARTERY BYPASS [None]
